FAERS Safety Report 4942194-5 (Version None)
Quarter: 2006Q1

REPORT INFORMATION
  Report Type: 
  Country: None (occurrence: None)
  Receive Date: 20060313
  Receipt Date: 20050831
  Transmission Date: 20060701
  Serious: No
  Sender: FDA-Public Use
  Company Number: US-GLAXOSMITHKLINE-A0572720A

PATIENT
  Age: 39 Year
  Sex: Female

DRUGS (1)
  1. NICORETTE [Suspect]

REACTIONS (5)
  - ABDOMINAL PAIN UPPER [None]
  - AGITATION [None]
  - DRUG ABUSER [None]
  - PHARYNGOLARYNGEAL PAIN [None]
  - TOOTH DISCOLOURATION [None]
